FAERS Safety Report 7823514-0 (Version None)
Quarter: 2011Q4

REPORT INFORMATION
  Report Type: 
  Country: None (occurrence: None)
  Receive Date: 20111019
  Receipt Date: 20111014
  Transmission Date: 20120403
  Serious: Yes (Other)
  Sender: FDA-Public Use
  Company Number: JP-PFIZER INC-2011247237

PATIENT
  Age: 65 Year
  Sex: Male

DRUGS (3)
  1. LYRICA [Suspect]
     Indication: POST HERPETIC NEURALGIA
     Dosage: 150 MG/DAY
     Dates: start: 20110901
  2. AMLODIPINE [Concomitant]
     Dosage: UNK
  3. METHYCOBAL [Concomitant]
     Dosage: UNK

REACTIONS (1)
  - DEAFNESS [None]
